FAERS Safety Report 7904158-9 (Version None)
Quarter: 2011Q4

REPORT INFORMATION
  Report Type: 
  Country: None (occurrence: None)
  Receive Date: 20111109
  Receipt Date: 20111104
  Transmission Date: 20120403
  Serious: Yes (Other)
  Sender: FDA-Public Use
  Company Number: US-PFIZER INC-2011270838

PATIENT
  Sex: Male
  Weight: 61.678 kg

DRUGS (8)
  1. DILTIAZEM [Concomitant]
     Dosage: UNK
  2. TOVIAZ [Suspect]
     Indication: POLLAKIURIA
     Dosage: 6 MG, 1X/DAY
     Route: 048
     Dates: start: 20111014, end: 20111026
  3. SERTRALINE [Concomitant]
     Dosage: UNK
  4. IRON [Concomitant]
     Dosage: UNK
  5. ACETYLSALICYLIC ACID [Concomitant]
     Dosage: UNK
  6. LEVOFLOXACIN [Concomitant]
     Dosage: UNK
  7. OMEPRAZOLE [Concomitant]
     Dosage: UNK
  8. PLAVIX [Concomitant]
     Dosage: UNK

REACTIONS (1)
  - FUNCTIONAL GASTROINTESTINAL DISORDER [None]
